FAERS Safety Report 14509791 (Version 15)
Quarter: 2020Q3

REPORT INFORMATION
  Report Type: Spontaneous
  Country: US (occurrence: US)
  Receive Date: 20180209
  Receipt Date: 20200928
  Transmission Date: 20201102
  Serious: Yes (Hospitalization, Other)
  Sender: FDA-Public Use
  Company Number: US-PFIZER INC-2018054722

PATIENT
  Age: 45 Year
  Sex: Male
  Weight: 74 kg

DRUGS (7)
  1. LYRICA [Suspect]
     Active Substance: PREGABALIN
     Indication: POLYNEUROPATHY
     Dosage: 225 MG, 2X/DAY
     Route: 048
     Dates: start: 2010
  2. PREZCOBIX [Concomitant]
     Active Substance: COBICISTAT\DARUNAVIR ETHANOLATE
     Indication: HIV INFECTION
     Dosage: UNK
  3. LYRICA [Suspect]
     Active Substance: PREGABALIN
     Dosage: 150 MG, DAILY
     Route: 048
  4. LYRICA [Suspect]
     Active Substance: PREGABALIN
     Dosage: 50 MG, DAILY (25MG 1 CAPSULE IN THE MORNING AND 1 IN THE EVENING)
  5. LYRICA [Suspect]
     Active Substance: PREGABALIN
     Indication: NEUROPATHY PERIPHERAL
     Dosage: 150 MG, AS NEEDED (ONCE DAILY)
     Route: 048
     Dates: start: 2010
  6. LYRICA [Suspect]
     Active Substance: PREGABALIN
     Dosage: 600 MG, ONCE A DAY (TAKE 1 CAPSULE BY ORAL ROUTE 1 TIME PER DAY)
     Route: 048
  7. TRIUMEQ [Concomitant]
     Active Substance: ABACAVIR SULFATE\DOLUTEGRAVIR SODIUM\LAMIVUDINE
     Indication: HIV INFECTION
     Dosage: UNK

REACTIONS (13)
  - Back injury [Unknown]
  - Lung disorder [Unknown]
  - Loss of consciousness [Unknown]
  - Hyperpyrexia [Unknown]
  - Therapeutic product effect incomplete [Unknown]
  - Eye disorder [Unknown]
  - Sensitivity to weather change [Unknown]
  - Feeling cold [Unknown]
  - Drug dependence [Unknown]
  - Encephalitis [Unknown]
  - Intentional product misuse [Unknown]
  - Irritability [Unknown]
  - Pain [Unknown]

NARRATIVE: CASE EVENT DATE: 2015
